FAERS Safety Report 23568533 (Version 1)
Quarter: 2024Q1

REPORT INFORMATION
  Report Type: Report from Study
  Country: US (occurrence: US)
  Receive Date: 20240227
  Receipt Date: 20240227
  Transmission Date: 20240410
  Serious: Yes (Other)
  Sender: FDA-Public Use
  Company Number: US-ABBVIE-5644179

PATIENT
  Age: 88 Year
  Sex: Female

DRUGS (1)
  1. CREON [Suspect]
     Active Substance: PANCRELIPASE AMYLASE\PANCRELIPASE LIPASE\PANCRELIPASE PROTEASE
     Indication: Dyspepsia
     Dosage: FORM STRENGTH: 36000 UNIT?2 CAP WITH MEAL AND 1 WITH SNACK
     Route: 048
     Dates: start: 202209

REACTIONS (2)
  - Pancreatic carcinoma [Recovering/Resolving]
  - Full blood count increased [Recovering/Resolving]

NARRATIVE: CASE EVENT DATE: 20231001
